FAERS Safety Report 7179113-X (Version None)
Quarter: 2010Q4

REPORT INFORMATION
  Report Type: 
  Country: None (occurrence: None)
  Receive Date: 20101221
  Receipt Date: 20101208
  Transmission Date: 20110411
  Serious: Yes (Other)
  Sender: FDA-Public Use
  Company Number: US-PFIZER INC-2010110016

PATIENT
  Sex: Male

DRUGS (2)
  1. CHANTIX [Suspect]
     Dosage: UNK
     Route: 048
  2. SERTRALINE HYDROCHLORIDE [Suspect]
     Dosage: UNK

REACTIONS (2)
  - DEPRESSION [None]
  - SUICIDAL IDEATION [None]
